FAERS Safety Report 6522538-3 (Version None)
Quarter: 2009Q4

REPORT INFORMATION
  Report Type: 
  Country: None (occurrence: None)
  Receive Date: 20091229
  Receipt Date: 20091229
  Transmission Date: 20100525
  Serious: Yes (Hospitalization)
  Sender: FDA-Public Use
  Company Number: None

PATIENT
  Sex: Male
  Weight: 75.6 kg

DRUGS (6)
  1. CYCLOPHOSPHAMIDE [Suspect]
     Dosage: 3800 MG
  2. CYTARABINE [Suspect]
     Dosage: 2272 MG
  3. MERCAPTOPURINE [Suspect]
     Dosage: 3360 MG
  4. METHOTREXATE [Suspect]
     Dosage: 30 MG
  5. PEG-L-ASPARAGINASE (K-H) 9500 MG [Suspect]
     Dosage: 9500 MG
  6. VINCRISTINE SULFATE [Suspect]
     Dosage: 8 MG

REACTIONS (2)
  - PNEUMONIA [None]
  - PULMONARY EMBOLISM [None]
